FAERS Safety Report 9152854 (Version 2)
Quarter: 2013Q1

REPORT INFORMATION
  Report Type: Spontaneous
  Country: GB (occurrence: GB)
  Receive Date: 20130309
  Receipt Date: 20130316
  Transmission Date: 20140127
  Serious: No
  Sender: FDA-Public Use
  Company Number: GB-US-EMD SERONO, INC.-7197775

PATIENT
  Sex: Male

DRUGS (1)
  1. REBIF [Suspect]
     Indication: RELAPSING-REMITTING MULTIPLE SCLEROSIS
     Route: 058
     Dates: start: 20030228

REACTIONS (1)
  - Hypoaesthesia [Unknown]
